FAERS Safety Report 7360651-1 (Version None)
Quarter: 2011Q1

REPORT INFORMATION
  Report Type: 
  Country: None (occurrence: None)
  Receive Date: 20110318
  Receipt Date: 20110218
  Transmission Date: 20110831
  Serious: Yes (Other)
  Sender: FDA-Public Use
  Company Number: FR-PFIZER INC-2009247070

PATIENT
  Sex: Male

DRUGS (12)
  1. ZAVEDOS [Suspect]
     Indication: ACUTE MYELOID LEUKAEMIA
     Dosage: 15.9 MG TOTAL, CYCLE 1
     Route: 042
     Dates: start: 20081205, end: 20081209
  2. ZAVEDOS [Suspect]
     Dosage: UNK
  3. DEXAMETHASONE [Suspect]
     Indication: ACUTE MYELOID LEUKAEMIA
     Dosage: 10 MG DAILY, CYCLE 1
     Route: 048
     Dates: start: 20081203, end: 20081207
  4. ATARAX [Concomitant]
     Dosage: 50 MG, UNK
     Route: 048
     Dates: start: 20081205, end: 20081205
  5. FASTURTEC [Concomitant]
     Dosage: 16 MG, UNK
     Route: 042
     Dates: start: 20081203, end: 20081206
  6. TAZOCILLINE [Suspect]
     Dosage: 12 G TOTAL DAILY
     Route: 042
     Dates: start: 20081203
  7. EMEND [Concomitant]
     Dosage: UNK
     Route: 048
     Dates: end: 20081208
  8. CYTARABINE [Suspect]
     Dosage: UNK
  9. CYTARABINE [Suspect]
     Indication: ACUTE MYELOID LEUKAEMIA
     Dosage: 200 MG TOTAL DAILY, CYCLE 1
     Route: 030
     Dates: start: 20081203, end: 20081208
  10. FORLAX [Suspect]
     Dosage: 3 DF, UNK
     Route: 048
     Dates: start: 20081205
  11. KAYEXALATE [Concomitant]
     Dosage: UNK
     Route: 048
     Dates: start: 20081207, end: 20081207
  12. CYTARABINE [Suspect]
     Dosage: UNK

REACTIONS (1)
  - PANCREATITIS ACUTE [None]
